FAERS Safety Report 24421131 (Version 1)
Quarter: 2024Q4

REPORT INFORMATION
  Report Type: Spontaneous
  Country: HU (occurrence: HU)
  Receive Date: 20241010
  Receipt Date: 20241010
  Transmission Date: 20250114
  Serious: Yes (Other)
  Sender: SANOFI AVENTIS
  Company Number: None

PATIENT
  Age: 51 Year
  Sex: Female

DRUGS (15)
  1. DOCETAXEL [Suspect]
     Active Substance: DOCETAXEL
     Indication: Invasive ductal breast carcinoma
     Dosage: UNK
     Route: 065
     Dates: start: 201704
  2. DOCETAXEL [Suspect]
     Active Substance: DOCETAXEL
     Indication: Benign breast neoplasm
  3. LETROZOLE [Suspect]
     Active Substance: LETROZOLE
     Indication: Invasive ductal breast carcinoma
     Dosage: 2.5 MG
     Route: 065
     Dates: start: 202010
  4. LETROZOLE [Suspect]
     Active Substance: LETROZOLE
     Indication: Breast cancer
     Dosage: 2.5 MG
     Route: 065
     Dates: start: 201910
  5. IBANDRONIC ACID [Suspect]
     Active Substance: IBANDRONIC ACID
     Indication: Invasive ductal breast carcinoma
     Dosage: UNK
     Route: 042
     Dates: start: 201704
  6. IBANDRONIC ACID [Suspect]
     Active Substance: IBANDRONIC ACID
     Indication: Breast cancer
  7. EVEROLIMUS [Suspect]
     Active Substance: EVEROLIMUS
     Indication: Breast cancer
     Dosage: UNK
     Route: 065
     Dates: start: 202208, end: 202209
  8. EPIRUBICIN [Suspect]
     Active Substance: EPIRUBICIN
     Indication: Breast cancer
     Dosage: UNK
     Route: 065
     Dates: start: 201704
  9. EPIRUBICIN [Suspect]
     Active Substance: EPIRUBICIN
     Indication: Invasive ductal breast carcinoma
  10. RIBOCICLIB [Suspect]
     Active Substance: RIBOCICLIB
     Indication: Breast cancer
     Dosage: 600 MG
     Route: 065
     Dates: start: 202010
  11. RIBOCICLIB [Suspect]
     Active Substance: RIBOCICLIB
     Indication: Invasive ductal breast carcinoma
     Dosage: 600 MG
     Route: 065
     Dates: start: 201910
  12. TAMOXIFEN CITRATE [Concomitant]
     Active Substance: TAMOXIFEN CITRATE
     Indication: Breast cancer
     Dosage: UNK
     Route: 065
     Dates: start: 201710
  13. DENOSUMAB [Concomitant]
     Active Substance: DENOSUMAB
     Indication: Breast cancer
     Dosage: UNK
     Route: 058
     Dates: start: 202010
  14. GOSERELIN [Concomitant]
     Active Substance: GOSERELIN
     Indication: Breast cancer
     Dosage: UNK
     Route: 065
     Dates: start: 202010
  15. EXEMESTANE [Concomitant]
     Active Substance: EXEMESTANE
     Indication: Breast cancer
     Dosage: UNK
     Route: 065
     Dates: start: 202208, end: 202209

REACTIONS (10)
  - Metastases to lung [Unknown]
  - Metastases to the mediastinum [Unknown]
  - Metastases to the mediastinum [Unknown]
  - Metastases to lymph nodes [Unknown]
  - Hydrothorax [Unknown]
  - Metastases to bone [Unknown]
  - Mucosal inflammation [Unknown]
  - Mucosal inflammation [Unknown]
  - Neutropenia [Unknown]
  - Hypertension [Unknown]

NARRATIVE: CASE EVENT DATE: 20170701
